FAERS Safety Report 25648265 (Version 1)
Quarter: 2025Q3

REPORT INFORMATION
  Report Type: Spontaneous
  Country: US (occurrence: US)
  Receive Date: 20250806
  Receipt Date: 20250806
  Transmission Date: 20251021
  Serious: No
  Sender: MERCK SHARP & DOHME LLC
  Company Number: US-009507513-2316151

PATIENT
  Age: 59 Year
  Sex: Male

DRUGS (3)
  1. PEMBROLIZUMAB [Suspect]
     Active Substance: PEMBROLIZUMAB
     Indication: Penis carcinoma recurrent
  2. CARBOPLATIN [Concomitant]
     Active Substance: CARBOPLATIN
     Indication: Penis carcinoma recurrent
  3. PACLITAXEL [Concomitant]
     Active Substance: PACLITAXEL
     Indication: Penis carcinoma recurrent

REACTIONS (1)
  - Product use in unapproved indication [Unknown]
